FAERS Safety Report 16691869 (Version 1)
Quarter: 2019Q3

REPORT INFORMATION
  Report Type: Spontaneous
  Country: ES (occurrence: ES)
  Receive Date: 20190812
  Receipt Date: 20190812
  Transmission Date: 20191004
  Serious: Yes (Other)
  Sender: FDA-Public Use
  Company Number: ES-TEVA-2019-ES-1091098

PATIENT
  Age: 65 Year
  Sex: Female
  Weight: 66 kg

DRUGS (6)
  1. DEXAMETASONA (722A) [Concomitant]
     Active Substance: DEXAMETHASONE
     Indication: PREMEDICATION
     Dosage: 12MG IV
     Route: 042
     Dates: start: 20190717, end: 20190717
  2. ONDANSETRON (2575A) [Concomitant]
     Active Substance: ONDANSETRON
     Indication: PREMEDICATION
     Dosage: 8MG IV
     Route: 042
     Dates: start: 20190717, end: 20190717
  3. ORFIDAL 1 MG COMPRIMIDOS, 50 COMPRIMIDOS [Concomitant]
     Active Substance: LORAZEPAM
     Route: 048
  4. SIMVASTATINA 20 MG 28 COMPRIMIDOS [Concomitant]
     Active Substance: SIMVASTATIN
     Route: 048
  5. OXALIPLATINO (7351A) [Suspect]
     Active Substance: OXALIPLATIN
     Indication: COLON CANCER STAGE IV
     Dosage: 85 MG/M2 IN FOLFOX SCHEME. FREQUENCY: EVERY 15 DAYS. HE HAD PREVIOUSLY RECEIVED IT UNTIL MARCH 2019
     Route: 042
     Dates: start: 20190717, end: 20190717
  6. OXALIPLATINO (7351A) [Suspect]
     Active Substance: OXALIPLATIN
     Dosage: 180 MG EVERY 3 WEEKS
     Route: 042
     Dates: start: 20181017, end: 20190311

REACTIONS (2)
  - Hypotension [Recovered/Resolved]
  - Laryngeal oedema [Recovered/Resolved]

NARRATIVE: CASE EVENT DATE: 20190717
